FAERS Safety Report 20341393 (Version 1)
Quarter: 2022Q1

REPORT INFORMATION
  Report Type: Other
  Country: CN (occurrence: None)
  Receive Date: 20220117
  Receipt Date: 20220117
  Transmission Date: 20220423
  Serious: Yes (Other)
  Sender: FDA-Public Use
  Company Number: CN-ROCHE-3002385

PATIENT

DRUGS (5)
  1. RITUXIMAB [Suspect]
     Active Substance: RITUXIMAB
     Indication: Lymphocytic leukaemia
     Dosage: ON DAY 0 OF CYCLE 1
     Route: 041
  2. RITUXIMAB [Suspect]
     Active Substance: RITUXIMAB
     Dosage: ON DAY 0 OF CYCLE 2-6
     Route: 041
  3. IBRUTINIB [Suspect]
     Active Substance: IBRUTINIB
     Indication: Lymphocytic leukaemia
     Route: 065
  4. ZANUBRUTINIB [Suspect]
     Active Substance: ZANUBRUTINIB
     Indication: Lymphocytic leukaemia
     Dosage: FROM DAY 0
     Route: 065
  5. BENDAMUSTINE [Suspect]
     Active Substance: BENDAMUSTINE
     Indication: Lymphocytic leukaemia
     Dosage: DAYS 1-2
     Route: 065

REACTIONS (8)
  - Neutropenia [Unknown]
  - Agranulocytosis [Unknown]
  - Thrombocytopenia [Unknown]
  - Malaise [Unknown]
  - Pruritus [Unknown]
  - Nausea [Unknown]
  - Vomiting [Unknown]
  - Haematuria [Unknown]
